FAERS Safety Report 20575332 (Version 1)
Quarter: 2022Q1

REPORT INFORMATION
  Report Type: Spontaneous
  Country: MD (occurrence: MD)
  Receive Date: 20220310
  Receipt Date: 20220310
  Transmission Date: 20220424
  Serious: Yes (Other)
  Sender: FDA-Public Use
  Company Number: MD-SA-SAC20220303000897

PATIENT
  Sex: Female
  Weight: 3.2 kg

DRUGS (3)
  1. IMIGLUCERASE [Suspect]
     Active Substance: IMIGLUCERASE
     Indication: Gaucher^s disease
     Dosage: 54 IU/KG, QOW
     Route: 065
     Dates: start: 2021, end: 2021
  2. IMIGLUCERASE [Suspect]
     Active Substance: IMIGLUCERASE
     Dosage: 60 IU/KG, QOW
     Route: 065
  3. IMIGLUCERASE [Suspect]
     Active Substance: IMIGLUCERASE
     Dosage: 40 IU/KG, QOW
     Route: 065

REACTIONS (5)
  - Hyperbilirubinaemia [Unknown]
  - Hypoproteinaemia [Recovered/Resolved]
  - Weight increased [Unknown]
  - Splenomegaly [Unknown]
  - Activated partial thromboplastin time prolonged [Recovered/Resolved]

NARRATIVE: CASE EVENT DATE: 20210101
